FAERS Safety Report 9784746 (Version 1)
Quarter: 2013Q4

REPORT INFORMATION
  Report Type: Report from Study
  Country: GB (occurrence: GB)
  Receive Date: 20131227
  Receipt Date: 20131227
  Transmission Date: 20140711
  Serious: Yes (Hospitalization, Other)
  Sender: FDA-Public Use
  Company Number: GB-ROCHE-1322152

PATIENT
  Sex: 0

DRUGS (1)
  1. ORLISTAT [Suspect]
     Indication: PRODUCT USED FOR UNKNOWN INDICATION
     Route: 048

REACTIONS (6)
  - Abortion spontaneous [Unknown]
  - Gastrointestinal disorder [Unknown]
  - Labour complication [Unknown]
  - Respiratory disorder [Unknown]
  - Urogenital disorder [Unknown]
  - Maternal exposure during pregnancy [Unknown]
